FAERS Safety Report 16255268 (Version 1)
Quarter: 2019Q2

REPORT INFORMATION
  Report Type: Spontaneous
  Country: US (occurrence: US)
  Receive Date: 20190429
  Receipt Date: 20190429
  Transmission Date: 20190711
  Serious: Yes (Hospitalization)
  Sender: FDA-Public Use
  Company Number: None

PATIENT
  Age: 65 Year
  Sex: Male

DRUGS (6)
  1. CAPECITABINE. [Suspect]
     Active Substance: CAPECITABINE
     Indication: COLON CANCER
     Route: 048
  2. CAPECITABINE. [Suspect]
     Active Substance: CAPECITABINE
     Indication: PROSTATE CANCER
     Route: 048
  3. FEXOFENADINE [Concomitant]
     Active Substance: FEXOFENADINE\FEXOFENADINE HYDROCHLORIDE
     Dates: start: 20190413
  4. ALBUTEROL. [Concomitant]
     Active Substance: ALBUTEROL
     Dates: start: 20190413
  5. CAPECITABINE. [Concomitant]
     Active Substance: CAPECITABINE
     Dates: start: 20190321
  6. FLUTICASONE. [Concomitant]
     Active Substance: FLUTICASONE
     Dates: start: 20190413

REACTIONS (2)
  - Therapy cessation [None]
  - Pneumonia [None]

NARRATIVE: CASE EVENT DATE: 20190427
